FAERS Safety Report 7974785-1 (Version None)
Quarter: 2011Q4

REPORT INFORMATION
  Report Type: 
  Country: None (occurrence: None)
  Receive Date: 20111213
  Receipt Date: 20111206
  Transmission Date: 20120403
  Serious: Yes (Disabling)
  Sender: FDA-Public Use
  Company Number: PHEH2011US02798

PATIENT
  Sex: Female
  Weight: 49.796 kg

DRUGS (6)
  1. FROVA [Concomitant]
     Indication: HEADACHE
     Dosage: 25 (UNITS UNKNOWN), PRN
     Route: 048
  2. GILENYA [Suspect]
     Indication: MULTIPLE SCLEROSIS
     Dosage: 0.5 MG, QD
     Route: 048
     Dates: start: 20110201
  3. AMANTADINE HCL [Concomitant]
     Indication: FATIGUE
     Dosage: 100 (UNITS UNKNOWN), BID
     Route: 048
  4. PROZAC [Concomitant]
     Indication: DEPRESSION
     Dosage: 10 MG, DAILY
     Route: 048
  5. ATIVAN [Concomitant]
     Indication: ANXIETY
     Dosage: 0.5 MG, PRN
     Route: 048
  6. MINOCYCLINE HCL [Concomitant]
     Indication: ACNE
     Dosage: 100 (UNITS UNKNOWN), DAILY
     Route: 048

REACTIONS (8)
  - BALANCE DISORDER [None]
  - DRUG INTOLERANCE [None]
  - DEPRESSION [None]
  - MALAISE [None]
  - FATIGUE [None]
  - MULTIPLE SCLEROSIS RELAPSE [None]
  - WHITE BLOOD CELL COUNT DECREASED [None]
  - MUSCULAR WEAKNESS [None]
